FAERS Safety Report 11843744 (Version 1)
Quarter: 2015Q4

REPORT INFORMATION
  Report Type: Spontaneous
  Country: US (occurrence: US)
  Receive Date: 20151217
  Receipt Date: 20151217
  Transmission Date: 20160305
  Serious: No
  Sender: FDA-Public Use
  Company Number: US-HOSPIRA-2931618

PATIENT
  Age: 32 Year
  Sex: Female
  Weight: 50.45 kg

DRUGS (3)
  1. ACETYLCYSTEINE. [Suspect]
     Active Substance: ACETYLCYSTEINE
     Indication: HEPATIC ENZYME INCREASED
     Dosage: 12 ML X 48 H
     Route: 042
     Dates: start: 20150629, end: 20150701
  2. DEXTROSE WATER [Concomitant]
     Indication: MEDICATION DILUTION
     Dosage: ONE TIME
     Route: 042
  3. ACETYLCYSTEINE. [Suspect]
     Active Substance: ACETYLCYSTEINE
     Indication: LIVER INJURY
     Dosage: 12 ML X 48 H
     Route: 042
     Dates: start: 20150629, end: 20150701

REACTIONS (3)
  - Incorrect route of drug administration [Recovered/Resolved]
  - Product preparation error [Recovered/Resolved]
  - No adverse event [None]

NARRATIVE: CASE EVENT DATE: 20150629
